FAERS Safety Report 7612982-5 (Version None)
Quarter: 2011Q3

REPORT INFORMATION
  Report Type: 
  Country: None (occurrence: None)
  Receive Date: 20110708
  Receipt Date: 20101004
  Transmission Date: 20111222
  Serious: Yes (Other)
  Sender: FDA-Public Use
  Company Number: GER/UKI/10/0016332

PATIENT
  Age: 76 Year
  Sex: Female

DRUGS (4)
  1. BECONASE [Concomitant]
  2. SERTRALINE HYDROCHLORIDE [Concomitant]
  3. ALBUTEROL SULFATE [Concomitant]
  4. RISPERIDONE [Suspect]
     Indication: BIPOLAR DISORDER

REACTIONS (2)
  - FLOPPY IRIS SYNDROME [None]
  - PROCEDURAL COMPLICATION [None]
